FAERS Safety Report 13656666 (Version 1)
Quarter: 2017Q2

REPORT INFORMATION
  Report Type: Spontaneous
  Country: US (occurrence: US)
  Receive Date: 20170615
  Receipt Date: 20170615
  Transmission Date: 20170830
  Serious: Yes (Death, Other)
  Sender: FDA-Public Use
  Company Number: US-HQ SPECIALTY-US-2017INT000211

PATIENT
  Age: 8 Day
  Sex: Female
  Weight: 2.8 kg

DRUGS (8)
  1. DEXMEDETOMIDINE HYDROCHLORIDE. [Suspect]
     Active Substance: DEXMEDETOMIDINE HYDROCHLORIDE
     Indication: SEDATION
     Dosage: 0.5 ?G/KG, 1 IN 1 H
     Route: 042
  2. EPINEPHRINE. [Concomitant]
     Active Substance: EPINEPHRINE
     Indication: PRODUCT USED FOR UNKNOWN INDICATION
     Dosage: 0.05 ?G/KG, 1 IN 1 H
     Route: 042
  3. VASOPRESSIN. [Concomitant]
     Active Substance: VASOPRESSIN
     Dosage: 0.0006U/KG/MIN
     Route: 042
  4. MILRINONE [Concomitant]
     Active Substance: MILRINONE
     Indication: PRODUCT USED FOR UNKNOWN INDICATION
     Dosage: 0.5 ?G/KG, 1 IN 1 MIN
     Route: 042
  5. DEXMEDETOMIDINE HYDROCHLORIDE. [Suspect]
     Active Substance: DEXMEDETOMIDINE HYDROCHLORIDE
     Dosage: 1 ?G/KG, 1 IN 1 H
     Route: 042
  6. NITROGLYCERIN. [Concomitant]
     Active Substance: NITROGLYCERIN
     Indication: PRODUCT USED FOR UNKNOWN INDICATION
     Dosage: 0.5 ?G/KG, 1 IN 1 MIN
     Route: 042
  7. VASOPRESSIN. [Concomitant]
     Active Substance: VASOPRESSIN
     Indication: PRODUCT USED FOR UNKNOWN INDICATION
     Dosage: 0.0003 U/KG/MIN
     Route: 042
  8. AMIODARONE [Suspect]
     Active Substance: AMIODARONE
     Indication: JUNCTIONAL ECTOPIC TACHYCARDIA
     Dosage: 5 MG/KG, OVER 1 HOUR WAS STARTED, BUT STOPPED AFTER 40 MINUTES (8MG ADMINISTERED)
     Route: 040

REACTIONS (6)
  - Pulseless electrical activity [Unknown]
  - Respiratory failure [Fatal]
  - Drug administered to patient of inappropriate age [Unknown]
  - Right ventricular dysfunction [Fatal]
  - Hypotension [Unknown]
  - Cardiac arrest neonatal [Unknown]
